FAERS Safety Report 6660632-7 (Version None)
Quarter: 2010Q1

REPORT INFORMATION
  Report Type: 
  Country: None (occurrence: None)
  Receive Date: 20100331
  Receipt Date: 20100322
  Transmission Date: 20100710
  Serious: Yes (Other)
  Sender: FDA-Public Use
  Company Number: US-NOVOPROD-306097

PATIENT
  Sex: Female
  Weight: 102.49 kg

DRUGS (2)
  1. VICTOZA [Suspect]
     Indication: WEIGHT DECREASED
     Dosage: 0.6 MG, QD
     Route: 058
     Dates: start: 20100301, end: 20100301
  2. VICTOZA [Suspect]
     Indication: WEIGHT CONTROL
     Dosage: 1.2 MG, QD
     Route: 058
     Dates: start: 20100301, end: 20100312

REACTIONS (5)
  - HYPERHIDROSIS [None]
  - OFF LABEL USE [None]
  - PANCREATITIS [None]
  - SELF-MEDICATION [None]
  - WEIGHT DECREASED [None]
